FAERS Safety Report 5870757-1 (Version None)
Quarter: 2008Q3

REPORT INFORMATION
  Report Type: 
  Country: None (occurrence: None)
  Receive Date: 20080904
  Receipt Date: 20080827
  Transmission Date: 20090109
  Serious: Yes (Life-Threatening, Other)
  Sender: FDA-Public Use
  Company Number: GB-AVENTIS-200813182EU

PATIENT
  Age: 68 Year
  Sex: Female

DRUGS (10)
  1. FRUSEMIDE [Suspect]
     Dates: start: 20071120
  2. FRUSEMIDE [Suspect]
  3. RAMIPRIL [Suspect]
     Route: 048
     Dates: start: 20070918, end: 20071020
  4. RAMIPRIL [Suspect]
     Route: 048
     Dates: start: 20071021
  5. RAMIPRIL [Suspect]
     Route: 048
     Dates: start: 20080115, end: 20080301
  6. DIHYDROCODEINE BITARTRATE INJ [Concomitant]
     Route: 048
     Dates: start: 19910101
  7. IBUPROFEN [Concomitant]
     Route: 048
     Dates: start: 20060101
  8. LEVOTHYROXINE SODIUM [Concomitant]
     Indication: HYPOTHYROIDISM
     Route: 048
     Dates: start: 20050101
  9. OMEPRAZOLE [Concomitant]
     Indication: PROPHYLAXIS AGAINST GASTROINTESTINAL ULCER
     Route: 048
     Dates: start: 20060101
  10. TIBOLONE [Concomitant]
     Route: 048
     Dates: start: 19970101

REACTIONS (8)
  - ASTHMA LATE ONSET [None]
  - BRONCHOSPASM [None]
  - CHRONIC OBSTRUCTIVE PULMONARY DISEASE [None]
  - COUGH [None]
  - DYSPNOEA [None]
  - LOSS OF CONSCIOUSNESS [None]
  - MALAISE [None]
  - WHEEZING [None]
